FAERS Safety Report 6429357-7 (Version None)
Quarter: 2009Q4

REPORT INFORMATION
  Report Type: 
  Country: None (occurrence: None)
  Receive Date: 20091105
  Receipt Date: 20090501
  Transmission Date: 20100525
  Serious: No
  Sender: FDA-Public Use
  Company Number: US-ABBOTT-09P-163-0571498-00

PATIENT
  Sex: Male
  Weight: 93.07 kg

DRUGS (30)
  1. KALETRA [Suspect]
     Indication: HIV INFECTION
     Dosage: 200/50 MILLIGRAM TABLETS
     Route: 048
     Dates: start: 20020401
  2. TRAZODONE HCL [Concomitant]
     Indication: INSOMNIA
  3. BACTRIM [Concomitant]
     Indication: PROPHYLAXIS
  4. BACTRIM [Concomitant]
     Indication: PNEUMONIA
  5. EPIVIR [Concomitant]
     Indication: HIV INFECTION
  6. VITAMIN B COMPLEX CAP [Concomitant]
     Indication: VITAMIN SUPPLEMENTATION
  7. THERA-M [Concomitant]
     Indication: VITAMIN SUPPLEMENTATION
  8. VIREAD [Concomitant]
     Indication: HIV INFECTION
  9. ACIDOPHILUS [Concomitant]
     Indication: GASTRIC DISORDER
  10. GABAPENTIN [Concomitant]
     Indication: NEUROPATHY PERIPHERAL
  11. ASCORBIC ACID [Concomitant]
     Indication: VITAMIN SUPPLEMENTATION
  12. PREVACID [Concomitant]
     Indication: GALLBLADDER DISORDER
  13. SELENIUM [Concomitant]
     Indication: MINERAL SUPPLEMENTATION
  14. ACYCLOVIR [Concomitant]
     Indication: HERPES VIRUS INFECTION
  15. CYMBALTA [Concomitant]
     Indication: AFFECTIVE DISORDER
  16. CYMBALTA [Concomitant]
     Indication: NEUROPATHY PERIPHERAL
  17. LORATADINE [Concomitant]
     Indication: SEASONAL ALLERGY
  18. AMBIEN [Concomitant]
     Indication: INSOMNIA
  19. FLOMAX [Concomitant]
     Indication: URINE FLOW DECREASED
  20. MORPHINE [Concomitant]
     Indication: PAIN
  21. MILK THISTLE [Concomitant]
     Indication: HEPATIC FUNCTION ABNORMAL
  22. IBUPROFEN [Concomitant]
     Indication: PAIN
  23. ANDROGEL [Concomitant]
     Indication: HORMONE REPLACEMENT THERAPY
  24. PROAIR HFA [Concomitant]
     Indication: ASTHMA
  25. XANAX [Concomitant]
     Indication: PANIC DISORDER
  26. SEROQUEL [Concomitant]
     Indication: INSOMNIA
  27. PROCRIT [Concomitant]
     Indication: RED BLOOD CELL COUNT ABNORMAL
  28. NEUPOGEN [Concomitant]
     Indication: WHITE BLOOD CELL COUNT ABNORMAL
  29. CALCIUM WITH VITAMIN D [Concomitant]
     Indication: MINERAL SUPPLEMENTATION
  30. FOSAMAX [Concomitant]
     Indication: OSTEOPOROSIS

REACTIONS (2)
  - BLOOD TRIGLYCERIDES INCREASED [None]
  - WEIGHT INCREASED [None]
